FAERS Safety Report 6741082-1 (Version None)
Quarter: 2010Q2

REPORT INFORMATION
  Report Type: 
  Country: None (occurrence: None)
  Receive Date: 20100526
  Receipt Date: 20100519
  Transmission Date: 20101027
  Serious: Yes (Other)
  Sender: FDA-Public Use
  Company Number: US-CEPHALON-2010002842

PATIENT
  Sex: Male

DRUGS (4)
  1. FENTORA [Suspect]
     Indication: BACK PAIN
     Route: 002
     Dates: start: 20100430, end: 20100502
  2. FENTANYL-75 [Concomitant]
     Indication: BACK PAIN
     Route: 062
     Dates: start: 20100430, end: 20100502
  3. OXYCONTIN [Concomitant]
     Indication: BACK PAIN
  4. AMBIEN [Concomitant]

REACTIONS (3)
  - BLISTER [None]
  - DRUG PRESCRIBING ERROR [None]
  - DYSPNOEA [None]
